FAERS Safety Report 24900082 (Version 2)
Quarter: 2025Q1

REPORT INFORMATION
  Report Type: Spontaneous
  Country: JP (occurrence: JP)
  Receive Date: 20250129
  Receipt Date: 20250314
  Transmission Date: 20250408
  Serious: Yes (Other)
  Sender: BRACCO
  Company Number: JP-BAYER-2025A010033

PATIENT
  Age: 9 Decade
  Sex: Male

DRUGS (1)
  1. IOPAMIRON [Suspect]
     Active Substance: IOPAMIDOL
     Indication: Optical coherence tomography
     Dates: start: 20230224, end: 20230224

REACTIONS (4)
  - Contrast media allergy [Recovered/Resolved]
  - Kounis syndrome [Recovering/Resolving]
  - Pulseless electrical activity [Recovering/Resolving]
  - Coronary artery occlusion [Recovering/Resolving]

NARRATIVE: CASE EVENT DATE: 20230224
